FAERS Safety Report 10365906 (Version 1)
Quarter: 2014Q3

REPORT INFORMATION
  Report Type: Spontaneous
  Country: IT (occurrence: IT)
  Receive Date: 20140806
  Receipt Date: 20140806
  Transmission Date: 20150326
  Serious: Yes (Other)
  Sender: FDA-Public Use
  Company Number: IT-TEVA-498978ISR

PATIENT
  Age: 70 Year
  Sex: Male

DRUGS (10)
  1. DELTACORTENE 25 MG [Concomitant]
     Active Substance: PREDNISONE
  2. MITOXANTRONE SANDOZ 2 MG/DL [Suspect]
     Active Substance: MITOXANTRONE HYDROCHLORIDE
     Indication: NON-HODGKIN^S LYMPHOMA
     Dosage: FORM OF ADMIN:CONCENTRATE FOR SOLUTION FOR INFUSION.
     Route: 042
     Dates: start: 20140603, end: 20140603
  3. TACHIPIRINA [Concomitant]
     Active Substance: ACETAMINOPHEN
     Dosage: FORM OF ADMIN.:EFFERVESCENT TABLET
  4. ENDOXAN BAXTER [Suspect]
     Active Substance: CYCLOPHOSPHAMIDE
     Indication: NON-HODGKIN^S LYMPHOMA
     Dosage: FORM OF ADMIN:POWDER FOR SOLUTION FOR INJECTION.
     Route: 042
     Dates: start: 20140603, end: 20140603
  5. TINSET 30 MG [Concomitant]
  6. MYCOSTATIN 100000 IU/ML [Concomitant]
  7. NOVONORM 0.5 MG [Concomitant]
     Active Substance: REPAGLINIDE
  8. VINCRISTINA TEVA ITALIA [Suspect]
     Active Substance: VINCRISTINE
     Indication: NON-HODGKIN^S LYMPHOMA
     Dates: start: 20140603, end: 20140603
  9. OMEPRAZEN 20 MG [Concomitant]
     Dosage: FORM OF ADMIN:GASTRO RESISTANT HARD CAPSULE
  10. MABTHERA [Suspect]
     Active Substance: RITUXIMAB
     Indication: NON-HODGKIN^S LYMPHOMA
     Route: 042
     Dates: start: 20140604, end: 20140604

REACTIONS (1)
  - Neutropenia [Recovered/Resolved]

NARRATIVE: CASE EVENT DATE: 20140617
